FAERS Safety Report 8173319-9 (Version None)
Quarter: 2012Q1

REPORT INFORMATION
  Report Type: 
  Country: None (occurrence: None)
  Receive Date: 20120223
  Receipt Date: 20120216
  Transmission Date: 20120608
  Serious: Yes (Other)
  Sender: FDA-Public Use
  Company Number: A0966178A

PATIENT
  Age: 23 Year
  Sex: Male

DRUGS (1)
  1. SODIUM FLUORIDE + POTASSIUM NITRATE (FORMULATION UNKNOWN) (SODIUM FLUO [Suspect]
     Indication: SENSITIVITY OF TEETH
     Dosage: DENTAL
     Route: 004
     Dates: start: 20110601, end: 20120216

REACTIONS (10)
  - CHAPPED LIPS [None]
  - MIDDLE INSOMNIA [None]
  - ORAL MUCOSAL EXFOLIATION [None]
  - LIP DRY [None]
  - POOR QUALITY SLEEP [None]
  - MOUTH ULCERATION [None]
  - BLOOD PRESSURE DECREASED [None]
  - LOSS OF CONSCIOUSNESS [None]
  - AMNESIA [None]
  - DRY MOUTH [None]
